FAERS Safety Report 21345705 (Version 1)
Quarter: 2022Q3

REPORT INFORMATION
  Report Type: Spontaneous
  Country: US (occurrence: US)
  Receive Date: 20220916
  Receipt Date: 20220916
  Transmission Date: 20221026
  Serious: Yes (Other)
  Sender: FDA-Public Use
  Company Number: US-GLAXOSMITHKLINE-US2022GSK133181

PATIENT

DRUGS (4)
  1. LAMOTRIGINE [Suspect]
     Active Substance: LAMOTRIGINE
     Indication: Bipolar disorder
     Dosage: 150 MG, 1D
  2. ESCITALOPRAM [Concomitant]
     Active Substance: ESCITALOPRAM OXALATE
     Indication: Bipolar disorder
     Dosage: 10 MG, 1D
  3. METHYLPHENIDATE [Concomitant]
     Active Substance: METHYLPHENIDATE
     Indication: Bipolar disorder
     Dosage: 15 MG, BID
  4. CLONAZEPAM [Concomitant]
     Active Substance: CLONAZEPAM
     Indication: Bipolar disorder
     Dosage: 1.5 MG, 1D

REACTIONS (8)
  - Pseudolymphoma [Recovered/Resolved]
  - Lymphocytic infiltration [Recovered/Resolved]
  - Papule [Recovered/Resolved]
  - Nodule [Recovered/Resolved]
  - Alopecia [Recovered/Resolved]
  - Condition aggravated [Recovered/Resolved]
  - Cutaneous lymphoma [Recovered/Resolved]
  - Lymphoproliferative disorder [Recovered/Resolved]
